FAERS Safety Report 13803598 (Version 2)
Quarter: 2017Q3

REPORT INFORMATION
  Report Type: Spontaneous
  Country: US (occurrence: US)
  Receive Date: 20170728
  Receipt Date: 20170827
  Transmission Date: 20171127
  Serious: No
  Sender: FDA-Public Use
  Company Number: US-BRISTOL-MYERS SQUIBB COMPANY-BMS-2017-067191

PATIENT
  Sex: Female

DRUGS (1)
  1. SPRYCEL [Suspect]
     Active Substance: DASATINIB
     Indication: BREAST CANCER
     Dosage: 100 MG, QD
     Route: 048
     Dates: start: 20170105

REACTIONS (2)
  - Diarrhoea [Unknown]
  - Product use in unapproved indication [Unknown]
